FAERS Safety Report 7227428-9 (Version None)
Quarter: 2011Q1

REPORT INFORMATION
  Report Type: 
  Country: None (occurrence: None)
  Receive Date: 20110111
  Receipt Date: 20110111
  Transmission Date: 20110831
  Serious: Yes (Other)
  Sender: FDA-Public Use
  Company Number: None

PATIENT
  Age: 39 Year
  Sex: Female
  Weight: 77.1115 kg

DRUGS (2)
  1. EXCEDRIN MENSTRUAL COMPLETE NOVARTIS CONSUMER HEALTH, INC. [Suspect]
     Indication: DYSMENORRHOEA
     Dosage: 2GELCAPSULES EVERY 4-6 HOURS PO
     Route: 048
     Dates: start: 20110109
  2. EXCEDRIN MENSTRUAL COMPLETE NOVARTIS CONSUMER HEALTH, INC. [Suspect]
     Indication: MENSTRUAL DISCOMFORT
     Dosage: 2GELCAPSULES EVERY 4-6 HOURS PO
     Route: 048
     Dates: start: 20110109

REACTIONS (7)
  - ANXIETY [None]
  - ABDOMINAL DISCOMFORT [None]
  - TACHYCARDIA [None]
  - HYPOAESTHESIA [None]
  - VISION BLURRED [None]
  - SOMNOLENCE [None]
  - FEAR [None]
